FAERS Safety Report 4614831-6 (Version None)
Quarter: 2005Q1

REPORT INFORMATION
  Report Type: 
  Country: None (occurrence: None)
  Receive Date: 20050318
  Receipt Date: 20050318
  Transmission Date: 20050727
  Serious: Yes (Other)
  Sender: FDA-Public Use
  Company Number: None

PATIENT
  Sex: Female
  Weight: 49 kg

DRUGS (2)
  1. CISPLATIN [Suspect]
     Dosage: DAY 1
     Dates: start: 20050131
  2. IRINOTECAN HCL [Suspect]
     Dosage: DAY 1+8 IV Q 3 WEEKS
     Route: 042

REACTIONS (9)
  - CHILLS [None]
  - COLLAPSE OF LUNG [None]
  - CONSTIPATION [None]
  - HYPOMAGNESAEMIA [None]
  - LUNG INFILTRATION [None]
  - NAUSEA [None]
  - OESOPHAGITIS [None]
  - PAIN [None]
  - VOMITING [None]
